FAERS Safety Report 5062754-3 (Version None)
Quarter: 2006Q3

REPORT INFORMATION
  Report Type: 
  Country: None (occurrence: None)
  Receive Date: 20060724
  Receipt Date: 20060712
  Transmission Date: 20061208
  Serious: Yes (Death)
  Sender: FDA-Public Use
  Company Number: 225657

PATIENT
  Age: 73 Year
  Sex: Male
  Weight: 77.5 kg

DRUGS (18)
  1. MABTHERA(RITUXIMAB) CONC FOR SOLUTION FOR INFUSION [Suspect]
     Indication: NON-HODGKIN'S LYMPHOMA
     Dosage: 375 MG/M2, Q4W, INTRAVENOUS
     Route: 042
     Dates: start: 20050128, end: 20050604
  2. FLUDARABINE [Suspect]
     Indication: NON-HODGKIN'S LYMPHOMA
     Dosage: 25 MG/M2, Q4W, INTRAVENOUS
     Route: 042
     Dates: start: 20050126, end: 20050604
  3. CYCLOPHOSPHAMIDE [Suspect]
     Indication: NON-HODGKIN'S LYMPHOMA
     Dosage: 1000 MG/M2, Q4W, INTRAVENOUS
     Route: 042
     Dates: start: 20050126, end: 20050602
  4. NICOTINE [Concomitant]
  5. DIGOXIN [Concomitant]
  6. ATROVENT [Concomitant]
  7. GENTAMICIN [Concomitant]
  8. VENTOLIN (ALBUTEROL/ALBUTEROL SULFATE) [Concomitant]
  9. DIGOXIN [Concomitant]
  10. TROMALYT (ASPIRIN) [Concomitant]
  11. LANACORDIN (DIGOXIN) [Concomitant]
  12. BISOPROLOL FUMARATE [Concomitant]
  13. LANTANON (MIANSERIN HYDROCHLORIDE) [Concomitant]
  14. SEPTRIN FORTE (SULFAMETHOXAZOLE, TRIMETHOPRIM) [Concomitant]
  15. ACYCLOVIR SODIUM [Concomitant]
  16. ALPRAZOLAM [Concomitant]
  17. ENOXAPARIN SODIUM [Concomitant]
  18. SERTRALINE HCL [Concomitant]

REACTIONS (8)
  - ATRIAL FIBRILLATION [None]
  - CARDIAC ARREST [None]
  - CHRONIC OBSTRUCTIVE PULMONARY DISEASE [None]
  - HEART RATE INCREASED [None]
  - HYDROPNEUMOTHORAX [None]
  - IATROGENIC INJURY [None]
  - OBLITERATIVE BRONCHIOLITIS [None]
  - VIRAL UPPER RESPIRATORY TRACT INFECTION [None]
